FAERS Safety Report 8032916-1 (Version None)
Quarter: 2011Q4

REPORT INFORMATION
  Report Type: 
  Country: None (occurrence: None)
  Receive Date: 20111229
  Receipt Date: 20111214
  Transmission Date: 20120403
  Serious: Yes (Other)
  Sender: FDA-Public Use
  Company Number: 2011SP058698

PATIENT
  Sex: Female

DRUGS (3)
  1. VICTRELIS [Suspect]
     Indication: HEPATITIS C
     Dates: start: 20111118
  2. PEG-INTRON [Suspect]
     Indication: HEPATITIS C
     Dates: start: 20111021
  3. RIBAVIRIN [Suspect]
     Indication: HEPATITIS C
     Dates: start: 20111021

REACTIONS (14)
  - INFLUENZA LIKE ILLNESS [None]
  - INJURY [None]
  - OEDEMA PERIPHERAL [None]
  - WHITE BLOOD CELL COUNT ABNORMAL [None]
  - SKIN DISCOLOURATION [None]
  - POLYMENORRHOEA [None]
  - DEHYDRATION [None]
  - NODULE [None]
  - MEMORY IMPAIRMENT [None]
  - CONTUSION [None]
  - FALL [None]
  - DRUG DOSE OMISSION [None]
  - JOINT SWELLING [None]
  - HEADACHE [None]
